FAERS Safety Report 23328655 (Version 1)
Quarter: 2023Q4

REPORT INFORMATION
  Report Type: Report from Study
  Country: US (occurrence: US)
  Receive Date: 20231221
  Receipt Date: 20231221
  Transmission Date: 20240110
  Serious: No
  Sender: FDA-Public Use
  Company Number: US-ALXN-A202305622

PATIENT
  Age: 24 Year
  Sex: Female

DRUGS (2)
  1. STRENSIQ [Suspect]
     Active Substance: ASFOTASE ALFA
     Indication: Hypophosphatasia
     Dosage: UNK
     Route: 065
  2. STRENSIQ [Suspect]
     Active Substance: ASFOTASE ALFA
     Dosage: 150 MILLIGRAM PER MILLILITRE, TIW
     Route: 058
     Dates: start: 20230612

REACTIONS (12)
  - Weight decreased [Recovering/Resolving]
  - Injection site discomfort [Recovered/Resolved]
  - Injection site discharge [Unknown]
  - Injury associated with device [Unknown]
  - Abdominal discomfort [Unknown]
  - Injection site pain [Not Recovered/Not Resolved]
  - Injection site bruising [Unknown]
  - Injection site haemorrhage [Unknown]
  - Injection site mass [Recovered/Resolved]
  - Mood altered [Unknown]
  - Dysuria [Unknown]
  - Weight increased [Unknown]

NARRATIVE: CASE EVENT DATE: 20230612
